FAERS Safety Report 9655620 (Version 1)
Quarter: 2013Q4

REPORT INFORMATION
  Report Type: Report from Study
  Country: AR (occurrence: AR)
  Receive Date: 20131030
  Receipt Date: 20131030
  Transmission Date: 20140711
  Serious: Yes (Other)
  Sender: FDA-Public Use
  Company Number: AR-ROCHE-1295316

PATIENT
  Sex: Male

DRUGS (1)
  1. LUCENTIS [Suspect]
     Indication: RETINAL DYSTROPHY
     Route: 050
     Dates: start: 201303

REACTIONS (2)
  - Usher^s syndrome [Not Recovered/Not Resolved]
  - Drug ineffective [Unknown]
